FAERS Safety Report 24607634 (Version 1)
Quarter: 2024Q4

REPORT INFORMATION
  Report Type: Spontaneous
  Country: FR (occurrence: FR)
  Receive Date: 20241112
  Receipt Date: 20241112
  Transmission Date: 20250115
  Serious: Yes (Life-Threatening, Hospitalization)
  Sender: RANBAXY
  Company Number: FR-AFSSAPS-NT2024001209

PATIENT
  Age: 69 Year
  Sex: Female
  Weight: 81.8 kg

DRUGS (4)
  1. QUETIAPINE [Suspect]
     Active Substance: QUETIAPINE
     Indication: Bipolar disorder
     Dosage: 2 TABLETS OF 400 MG IN THE EVENING
     Route: 048
  2. LOXAPINE [Suspect]
     Active Substance: LOXAPINE
     Indication: Psychiatric decompensation
     Dosage: 25 MG MORNING, NOON AND 100 MG IN THE EVENING, THEN 50 MG MORNING, NOON AND 100 MG IN THE EVENING SI
     Route: 048
     Dates: start: 20240624, end: 20240827
  3. TERALITHE [Suspect]
     Active Substance: LITHIUM CARBONATE
     Indication: Bipolar disorder
     Dosage: 03/2024 800 MG; 06/16/2024: 600 MG; 06/25/2024: 800 MG/DAY; THERAPEUTIC WINDOW AND GRADUAL RESUMPTIO
     Route: 048
     Dates: start: 2018
  4. HALDOL [Suspect]
     Active Substance: HALOPERIDOL
     Indication: Bipolar disorder
     Dosage: 10 DOSAGE FORM, DAILY
     Route: 048

REACTIONS (3)
  - Faecaloma [Recovered/Resolved]
  - Neuroleptic malignant syndrome [Recovered/Resolved]
  - Impaired gastric emptying [Unknown]

NARRATIVE: CASE EVENT DATE: 20240727
